FAERS Safety Report 14882139 (Version 2)
Quarter: 2018Q2

REPORT INFORMATION
  Report Type: Spontaneous
  Country: US (occurrence: US)
  Receive Date: 20180511
  Receipt Date: 20180606
  Transmission Date: 20180711
  Serious: Yes (Hospitalization, Other)
  Sender: FDA-Public Use
  Company Number: US-ASTRAZENECA-2018SE60743

PATIENT
  Age: 30299 Day
  Sex: Female
  Weight: 57.3 kg

DRUGS (28)
  1. TAGRISSO [Suspect]
     Active Substance: OSIMERTINIB
     Indication: GENE MUTATION IDENTIFICATION TEST POSITIVE
     Route: 048
     Dates: start: 20180322, end: 20180503
  2. METOPROLOL. [Concomitant]
     Active Substance: METOPROLOL
  3. METHYLPREDNISOLONE. [Concomitant]
     Active Substance: METHYLPREDNISOLONE
     Dosage: 8 MG TABLET 3 TABLET WITH FOOD OR MILK ORALLY THREE TIMES PER
     Route: 048
     Dates: end: 20180504
  4. ATORVASTATIN CALCIUM. [Concomitant]
     Active Substance: ATORVASTATIN CALCIUM
     Route: 048
  5. ASPIRIN. [Concomitant]
     Active Substance: ASPIRIN
     Route: 048
  6. MEGACE [Concomitant]
     Active Substance: MEGESTROL ACETATE
     Dosage: 40 MG/ML SUSPENSION 10 ML (4OOMG) ORALLY TWICE A DAY
     Route: 048
  7. ATIVAN [Concomitant]
     Active Substance: LORAZEPAM
  8. PANTOPRAZOLE SODIUM. [Concomitant]
     Active Substance: PANTOPRAZOLE SODIUM
     Route: 048
  9. XGEVA [Concomitant]
     Active Substance: DENOSUMAB
     Dosage: 120 MG/T.7ML SOLUTION 1.7 ML
     Route: 058
  10. ONDANSETRON HCL [Concomitant]
     Active Substance: ONDANSETRON HYDROCHLORIDE
     Indication: NAUSEA
     Dosage: 8 MG TABLET 1 TABLET ORALLY THREE TIMES A DAY AS NEEDED
     Route: 048
  11. TAGRISSO [Suspect]
     Active Substance: OSIMERTINIB
     Indication: NON-SMALL CELL LUNG CANCER METASTATIC
     Route: 048
     Dates: start: 20180322, end: 20180503
  12. CHROMIUM PICOLINATE [Concomitant]
     Active Substance: CHROMIUM PICOLINATE
     Route: 048
  13. FLOVENT HFA44 [Concomitant]
     Dosage: AEROSOL 2 PUFFS INHALATION TWICE A DAY
  14. AMLODIPINE BESY-BENAZEPRIL [Concomitant]
  15. FISH OIL [Concomitant]
     Active Substance: FISH OIL
     Route: 048
  16. IMODIUM A-D [Concomitant]
     Active Substance: LOPERAMIDE HYDROCHLORIDE
     Route: 048
  17. PANTOPRAZOLE [Concomitant]
     Active Substance: PANTOPRAZOLE
  18. LORAZEPAM. [Concomitant]
     Active Substance: LORAZEPAM
     Dosage: 1 MG TABLET 1 TABLET AT BEDTIME AS NEEDED ORALLY ONCE A DAY AT BEDTIME
     Route: 048
  19. VITAMIN B COMPLEX [Concomitant]
     Active Substance: CYANOCOBALAMIN\DEXPANTHENOL\NIACINAMIDE\PYRIDOXINE HYDROCHLORIDE\RIBOFLAVIN 5^-PHOSPHATE SODIUM\THIAMINE HYDROCHLORIDE\VITAMIN B COMPLEX
  20. CALCIUM [Concomitant]
     Active Substance: CALCIUM
     Dosage: 600-200 MG-UNIT TABLET ORALLY
     Route: 048
  21. COMPAZINE [Concomitant]
     Active Substance: PROCHLORPERAZINE MALEATE
     Indication: NAUSEA
     Dosage: 10 MG TABLET 1 TABLET ORALLY EVERY 8 HOURS AS NEEDED
     Route: 048
  22. DICYCLOMINE HCL [Concomitant]
     Active Substance: DICYCLOMINE HYDROCHLORIDE
     Route: 048
  23. MSM [Concomitant]
     Active Substance: DIMETHYL SULFONE
     Route: 048
  24. ONDANSETRON HCL [Concomitant]
     Active Substance: ONDANSETRON HYDROCHLORIDE
     Indication: VOMITING
     Dosage: 8 MG TABLET 1 TABLET ORALLY THREE TIMES A DAY AS NEEDED
     Route: 048
  25. LIPITOR [Concomitant]
     Active Substance: ATORVASTATIN CALCIUM
  26. LOMOTIL [Concomitant]
     Active Substance: ATROPINE SULFATE\DIPHENOXYLATE HYDROCHLORIDE
     Dosage: .5-0.025 MG AS NEEDED
     Route: 048
  27. ESZOPICLONE. [Concomitant]
     Active Substance: ESZOPICLONE
     Dosage: 3 MG TABLET 1 TABLET IMMEDIATELY BEFORE BEDTIME
     Route: 048
  28. ACYCLOVIR. [Concomitant]
     Active Substance: ACYCLOVIR
     Route: 048

REACTIONS (8)
  - Anaemia [Unknown]
  - Pneumonitis [Recovering/Resolving]
  - Nephrogenic anaemia [Unknown]
  - Cardiac failure congestive [Unknown]
  - Chronic obstructive pulmonary disease [Unknown]
  - Pleural effusion [Recovering/Resolving]
  - Fatigue [Unknown]
  - Dizziness [Unknown]

NARRATIVE: CASE EVENT DATE: 20180411
